FAERS Safety Report 7760364-8 (Version None)
Quarter: 2011Q3

REPORT INFORMATION
  Report Type: 
  Country: None (occurrence: None)
  Receive Date: 20110919
  Receipt Date: 20110907
  Transmission Date: 20111222
  Serious: Yes (Hospitalization, Other)
  Sender: FDA-Public Use
  Company Number: PHHY2011US80047

PATIENT
  Age: 63 Year
  Sex: Female

DRUGS (8)
  1. GLUCOCORTICOIDS [Concomitant]
  2. MYCOPHENOLATE MOFETIL [Suspect]
  3. ANTI-THYMOCYTE GLOBULIN NOS [Concomitant]
     Dosage: 6 MG/KG, UNK
  4. TACROLIMUS [Concomitant]
  5. TRIMETHOPRIM [Concomitant]
  6. SULFAMETHOXAZOLE [Concomitant]
  7. CO-TRIMAZOLE [Concomitant]
     Dosage: 10 MG, TID
  8. VALGANCICLOVIR [Concomitant]

REACTIONS (4)
  - CHILLS [None]
  - ORTHOSTATIC HYPOTENSION [None]
  - DIARRHOEA HAEMORRHAGIC [None]
  - PYREXIA [None]
